FAERS Safety Report 12609740 (Version 1)
Quarter: 2016Q3

REPORT INFORMATION
  Report Type: Spontaneous
  Country: US (occurrence: US)
  Receive Date: 20160801
  Receipt Date: 20160801
  Transmission Date: 20161109
  Serious: No
  Sender: FDA-Public Use
  Company Number: US-TEVA-641430USA

PATIENT
  Sex: Female

DRUGS (1)
  1. RANITIDINE. [Suspect]
     Active Substance: RANITIDINE
     Route: 065

REACTIONS (6)
  - Lip swelling [Unknown]
  - Hypersensitivity [Unknown]
  - Product substitution issue [Unknown]
  - Dysphonia [Unknown]
  - Oropharyngeal pain [Unknown]
  - Nasal discomfort [Unknown]
